FAERS Safety Report 24711774 (Version 3)
Quarter: 2025Q3

REPORT INFORMATION
  Report Type: Report from Study
  Country: US (occurrence: US)
  Receive Date: 20241209
  Receipt Date: 20250809
  Transmission Date: 20251021
  Serious: Yes (Hospitalization)
  Sender: ALEXION PHARMACEUTICALS
  Company Number: US-ALXN-202412USA003436US

PATIENT
  Sex: Female

DRUGS (1)
  1. STRENSIQ [Suspect]
     Active Substance: ASFOTASE ALFA
     Route: 065

REACTIONS (5)
  - Gastrointestinal disorder [Unknown]
  - Blood alkaline phosphatase decreased [Unknown]
  - Pain in extremity [Unknown]
  - Insurance issue [Unknown]
  - Blood phosphorus increased [Unknown]
